FAERS Safety Report 14492545 (Version 1)
Quarter: 2018Q1

REPORT INFORMATION
  Report Type: Spontaneous
  Country: RU (occurrence: RU)
  Receive Date: 20180206
  Receipt Date: 20180206
  Transmission Date: 20180509
  Serious: Yes (Hospitalization)
  Sender: FDA-Public Use
  Company Number: RU-ASTRAZENECA-2018SE14477

PATIENT
  Age: 60 Year
  Sex: Male
  Weight: 60 kg

DRUGS (7)
  1. BRILINTA [Suspect]
     Active Substance: TICAGRELOR
     Indication: MYOCARDIAL INFARCTION
     Route: 048
     Dates: start: 201708
  2. PERINDOPRIL [Concomitant]
     Active Substance: PERINDOPRIL
  3. VEROSPIRON [Concomitant]
     Active Substance: SPIRONOLACTONE
  4. DIUVER [Concomitant]
     Active Substance: TORSEMIDE
  5. ATORIS [Concomitant]
     Active Substance: ATORVASTATIN CALCIUM
  6. THROMBO ASS [Concomitant]
     Active Substance: ASPIRIN
  7. OMEPRAZOLE. [Concomitant]
     Active Substance: OMEPRAZOLE

REACTIONS (4)
  - Dyspnoea [Not Recovered/Not Resolved]
  - Blood pressure decreased [Not Recovered/Not Resolved]
  - General physical health deterioration [Not Recovered/Not Resolved]
  - Oedema peripheral [Not Recovered/Not Resolved]

NARRATIVE: CASE EVENT DATE: 201711
